FAERS Safety Report 21088658 (Version 1)
Quarter: 2022Q3

REPORT INFORMATION
  Report Type: Spontaneous
  Country: PR (occurrence: None)
  Receive Date: 20220715
  Receipt Date: 20220715
  Transmission Date: 20221027
  Serious: Yes (Hospitalization)
  Sender: FDA-Public Use
  Company Number: None

PATIENT
  Age: 61 Year
  Sex: Female

DRUGS (2)
  1. HUMIRA [Suspect]
     Active Substance: ADALIMUMAB
  2. HUMIRA [Concomitant]
     Active Substance: ADALIMUMAB
     Dates: start: 20220124, end: 20220422

REACTIONS (2)
  - Abscess [None]
  - Oedema [None]

NARRATIVE: CASE EVENT DATE: 20220715
